FAERS Safety Report 15289129 (Version 1)
Quarter: 2018Q4

REPORT INFORMATION
  Report Type: Spontaneous
  Country: FR (occurrence: FR)
  Receive Date: 20180817
  Receipt Date: 20180817
  Transmission Date: 20190204
  Serious: Yes (Life-Threatening)
  Sender: FDA-Public Use
  Company Number: FR-TEVA-2018-FR-941814

PATIENT
  Age: 69 Year
  Sex: Male
  Weight: 106 kg

DRUGS (12)
  1. SEEBRI BREEZHALER 44 MICROGRAMMES, POUDRE POUR INHALATION EN G?LULE [Suspect]
     Active Substance: GLYCOPYRROLATE
     Indication: CHRONIC OBSTRUCTIVE PULMONARY DISEASE
     Dosage: 3 DOSAGE FORMS DAILY;
     Route: 055
     Dates: end: 20180705
  2. DIFFU K, G?LULE [Suspect]
     Active Substance: POTASSIUM CHLORIDE
     Indication: HYPOKALAEMIA
     Dosage: 3 DOSAGE FORMS DAILY;
     Route: 048
     Dates: end: 20180705
  3. ALPRAZOLAM. [Suspect]
     Active Substance: ALPRAZOLAM
     Indication: PRODUCT USED FOR UNKNOWN INDICATION
     Dosage: .25 MILLIGRAM DAILY;
     Route: 048
     Dates: end: 20180705
  4. AMLODIPINE [Suspect]
     Active Substance: AMLODIPINE BESYLATE
     Indication: HYPERTENSION
     Dosage: 5 MILLIGRAM DAILY;
     Route: 048
     Dates: end: 20180705
  5. PANTOPRAZOLE [Concomitant]
     Active Substance: PANTOPRAZOLE
     Route: 065
  6. LASILIX [Concomitant]
     Active Substance: FUROSEMIDE
     Route: 065
  7. TRAMADOL (CHLORHYDRATE DE) [Suspect]
     Active Substance: TRAMADOL HYDROCHLORIDE
     Indication: PAIN
     Dosage: 300 MILLIGRAM DAILY;
     Route: 048
     Dates: end: 20180705
  8. PREVISCAN 20 MG, COMPRIM? S?CABLE [Suspect]
     Active Substance: FLUINDIONE
     Indication: ATRIAL FIBRILLATION
     Dosage: EN ALTERNANCE 0.75/CP ET 0.5/CP UN JOUR SUR DEUX
     Route: 048
     Dates: end: 20180705
  9. ESIDREX [Concomitant]
     Active Substance: HYDROCHLOROTHIAZIDE
     Route: 065
  10. ISOPTINE 40 MG, COMPRIM? ENROB? [Suspect]
     Active Substance: VERAPAMIL HYDROCHLORIDE
     Indication: ATRIAL FIBRILLATION
     Dosage: 3 DOSAGE FORMS DAILY;
     Route: 048
     Dates: start: 20180626, end: 20180705
  11. HEMIGOXINE NATIVELLE 0,125 MG, COMPRIM? [Suspect]
     Active Substance: DIGOXIN
     Indication: ATRIAL FIBRILLATION
     Dosage: 1 COMPRIM? 5 JOURS SUR 7
     Route: 048
     Dates: end: 20180705
  12. SPECIAFOLDINE 5 MG, COMPRIM? [Suspect]
     Active Substance: FOLIC ACID
     Indication: PRODUCT USED FOR UNKNOWN INDICATION
     Dosage: 1 DOSAGE FORMS DAILY;
     Route: 048
     Dates: end: 20180705

REACTIONS (7)
  - Cardiac failure [Recovering/Resolving]
  - Acute kidney injury [Recovering/Resolving]
  - Hyperkalaemia [Recovered/Resolved]
  - Overdose [Recovering/Resolving]
  - Arrhythmia [Recovered/Resolved]
  - Cardiogenic shock [Recovered/Resolved]
  - Cardiorenal syndrome [Recovering/Resolving]

NARRATIVE: CASE EVENT DATE: 20180705
